FAERS Safety Report 23640112 (Version 1)
Quarter: 2024Q1

REPORT INFORMATION
  Report Type: Spontaneous
  Country: GB (occurrence: GB)
  Receive Date: 20240317
  Receipt Date: 20240317
  Transmission Date: 20240410
  Serious: Yes (Other)
  Sender: FDA-Public Use
  Company Number: None

PATIENT
  Age: 70 Year
  Sex: Female

DRUGS (10)
  1. CLOPIDOGREL [Suspect]
     Active Substance: CLOPIDOGREL BISULFATE
     Indication: Product used for unknown indication
     Dosage: EVERY MORNING
  2. GLICLAZIDE [Concomitant]
     Active Substance: GLICLAZIDE
     Dosage: AT BREAKFAST AND TEATIME
  3. METFORMIN [Concomitant]
     Active Substance: METFORMIN HYDROCHLORIDE
     Dosage: WITH BREAKFAST AND TEATIME MEAL
  4. LANSOPRAZOLE [Concomitant]
     Active Substance: LANSOPRAZOLE
     Dosage: EVERY MORNING.  PATIENT STOPPED DUE TO DIARRHOEA, FATIGUE, SKIN RASH, HAIR LOSS
  5. LACTULOSE [Concomitant]
     Active Substance: LACTULOSE
     Dosage: 3.1 - 3.7 G / 5 ML
  6. RIFAXIMIN [Concomitant]
     Active Substance: RIFAXIMIN
  7. FUROSEMIDE [Concomitant]
     Active Substance: FUROSEMIDE
     Dosage: EVERY MORNING. PATIENT STOPPED, FELT INEFFECTIVE.
  8. EZETIMIBE [Concomitant]
     Active Substance: EZETIMIBE
     Dosage: EVERY MORNING
  9. FERROUS SULFATE [Concomitant]
     Active Substance: FERROUS SULFATE
     Dosage: PATIENT STOPPED DUE TO CONSTIPATION
  10. SAXAGLIPTIN [Concomitant]
     Active Substance: SAXAGLIPTIN
     Dosage: EVERY MORNING

REACTIONS (2)
  - Cerebrovascular accident [Recovered/Resolved]
  - Treatment failure [Recovered/Resolved]

NARRATIVE: CASE EVENT DATE: 20230829
